FAERS Safety Report 17598994 (Version 3)
Quarter: 2020Q3

REPORT INFORMATION
  Report Type: Report from Study
  Country: None (occurrence: US)
  Receive Date: 20200330
  Receipt Date: 20200830
  Transmission Date: 20201102
  Serious: Yes (Hospitalization)
  Sender: FDA-Public Use
  Company Number: US-ABBVIE-20K-163-3340073-00

PATIENT
  Sex: Female

DRUGS (1)
  1. RINVOQ [Suspect]
     Active Substance: UPADACITINIB
     Indication: RHEUMATOID ARTHRITIS
     Route: 048

REACTIONS (10)
  - Headache [Recovering/Resolving]
  - Dizziness [Recovering/Resolving]
  - Hypertension [Unknown]
  - Dehydration [Recovering/Resolving]
  - Abdominal pain [Recovering/Resolving]
  - Gastrointestinal infection [Unknown]
  - Diverticulitis [Unknown]
  - Liver function test increased [Unknown]
  - Joint swelling [Recovered/Resolved]
  - Heart rate decreased [Unknown]

NARRATIVE: CASE EVENT DATE: 2019
